FAERS Safety Report 4536834-2 (Version None)
Quarter: 2004Q4

REPORT INFORMATION
  Report Type: 
  Country: None (occurrence: None)
  Receive Date: 20041223
  Receipt Date: 20040913
  Transmission Date: 20050328
  Serious: Yes (Life-Threatening, Hospitalization, Other)
  Sender: FDA-Public Use
  Company Number: US-GLAXOSMITHKLINE-A0525721A

PATIENT
  Age: 56 Year
  Sex: Female
  Weight: 91.4 kg

DRUGS (12)
  1. LAMICTAL [Suspect]
     Indication: BIPOLAR DISORDER
     Dosage: 25MG PER DAY
     Route: 048
  2. HYDROCHLOROTHIAZIDE [Concomitant]
  3. PARNATE [Concomitant]
  4. PREVACID [Concomitant]
  5. LOPID [Concomitant]
  6. VICODIN [Concomitant]
  7. VIOXX [Concomitant]
  8. SALAGEN [Concomitant]
  9. AMITRIPTYLINE [Concomitant]
  10. ARICEPT [Concomitant]
  11. CLONAZEPAM [Concomitant]
  12. THORAZINE [Concomitant]

REACTIONS (14)
  - ACUTE RESPIRATORY DISTRESS SYNDROME [None]
  - ADVERSE EVENT [None]
  - CONFUSIONAL STATE [None]
  - DERMATITIS BULLOUS [None]
  - DIALYSIS [None]
  - INTUBATION [None]
  - LIFE SUPPORT [None]
  - PYREXIA [None]
  - RASH ERYTHEMATOUS [None]
  - RENAL FAILURE [None]
  - RESPIRATORY FAILURE [None]
  - SCAB [None]
  - SKIN DESQUAMATION [None]
  - STEVENS-JOHNSON SYNDROME [None]
